FAERS Safety Report 7154454-0 (Version None)
Quarter: 2010Q4

REPORT INFORMATION
  Report Type: 
  Country: None (occurrence: None)
  Receive Date: 20101213
  Receipt Date: 20101209
  Transmission Date: 20110411
  Serious: Yes (Death)
  Sender: FDA-Public Use
  Company Number: ES-MERCK-1011ESP00030

PATIENT
  Age: 84 Year
  Sex: Male
  Weight: 67 kg

DRUGS (11)
  1. JANUVIA [Suspect]
     Route: 048
  2. INFLUENZA VIRUS SAG 3V VACCINE INACTIVATED [Suspect]
     Indication: ANTIVIRAL PROPHYLAXIS
     Route: 030
     Dates: start: 20101005, end: 20101005
  3. INDACATEROL MALEATE [Suspect]
     Indication: CHRONIC OBSTRUCTIVE PULMONARY DISEASE
     Route: 055
     Dates: start: 20101005, end: 20101006
  4. ALBUTEROL SULFATE [Concomitant]
     Indication: CHRONIC OBSTRUCTIVE PULMONARY DISEASE
     Route: 055
     Dates: end: 20101005
  5. TERAZOSIN HYDROCHLORIDE [Concomitant]
     Route: 048
  6. DIGOXIN [Concomitant]
     Route: 048
  7. ASPIRIN [Concomitant]
     Route: 065
  8. SIMVASTATIN [Concomitant]
     Route: 065
  9. MEBEVERINE HYDROCHLORIDE [Concomitant]
     Route: 065
  10. GLIMEPIRIDE [Concomitant]
     Route: 065
  11. ALANINE AND GLUTAMIC ACID AND GLYCINE AND PYGEUM [Concomitant]
     Route: 065

REACTIONS (1)
  - SUDDEN DEATH [None]
